FAERS Safety Report 6258345-9 (Version None)
Quarter: 2009Q3

REPORT INFORMATION
  Report Type: 
  Country: None (occurrence: None)
  Receive Date: 20090702
  Receipt Date: 20090618
  Transmission Date: 20100115
  Serious: Yes (Hospitalization)
  Sender: FDA-Public Use
  Company Number: 000661

PATIENT
  Sex: Female
  Weight: 80 kg

DRUGS (8)
  1. VIMPAT [Suspect]
     Indication: EPILEPSY
     Dosage: 200 MG BID ORAL
     Route: 048
     Dates: start: 20090121, end: 20090507
  2. KEPPRA [Suspect]
     Indication: EPILEPSY
     Dosage: 3500  MG, DAILY IN TWO INTAKES ORAL
     Route: 048
  3. HYDROCHLOROTHIAZIDE [Concomitant]
  4. VIGANTOLETTEN [Concomitant]
  5. CALCIUM [Concomitant]
  6. FOSAMAX [Concomitant]
  7. ESTRIOL [Concomitant]
  8. COTRIM [Concomitant]

REACTIONS (4)
  - ARRHYTHMIA [None]
  - ATRIAL FIBRILLATION [None]
  - CARDIAC FAILURE [None]
  - TACHYCARDIA [None]
